FAERS Safety Report 15414289 (Version 1)
Quarter: 2018Q3

REPORT INFORMATION
  Report Type: Spontaneous
  Country: US (occurrence: US)
  Receive Date: 20180921
  Receipt Date: 20180921
  Transmission Date: 20181010
  Serious: Yes (Hospitalization, Other)
  Sender: FDA-Public Use
  Company Number: US-TEVA-2018-US-955229

PATIENT
  Age: 47 Year
  Sex: Female

DRUGS (1)
  1. ESTRADIOL VALERATE. [Suspect]
     Active Substance: ESTRADIOL VALERATE
     Indication: HYSTERECTOMY
     Dates: start: 201202, end: 201806

REACTIONS (2)
  - Thrombosis [Unknown]
  - Leg amputation [Unknown]

NARRATIVE: CASE EVENT DATE: 20180621
